FAERS Safety Report 8249407-5 (Version None)
Quarter: 2012Q2

REPORT INFORMATION
  Report Type: 
  Country: None (occurrence: None)
  Receive Date: 20120402
  Receipt Date: 20120326
  Transmission Date: 20120825
  Serious: Yes (Hospitalization)
  Sender: FDA-Public Use
  Company Number: US-JNJFOC-20120303952

PATIENT
  Sex: Male
  Weight: 122 kg

DRUGS (13)
  1. AMLODIPINE [Concomitant]
  2. ZOCOR [Concomitant]
  3. LIPOFLAVONOID [Concomitant]
  4. FISH OIL [Concomitant]
  5. OXYCONTIN [Concomitant]
  6. FLAXSEED OIL [Concomitant]
  7. XARELTO [Suspect]
     Indication: KNEE ARTHROPLASTY
     Route: 048
     Dates: start: 20120223, end: 20120301
  8. ATENOLOL [Concomitant]
  9. MULTI-VITAMINS [Concomitant]
  10. UNSPECIFIED BLOOD PRESSURE MEDS [Concomitant]
  11. CALCIUM CARBONATE [Concomitant]
  12. PERCOCET [Concomitant]
     Route: 048
  13. VITAMIN D [Concomitant]

REACTIONS (1)
  - PULMONARY EMBOLISM [None]
